FAERS Safety Report 7717676-3 (Version None)
Quarter: 2011Q3

REPORT INFORMATION
  Report Type: 
  Country: None (occurrence: None)
  Receive Date: 20110830
  Receipt Date: 20110830
  Transmission Date: 20111222
  Serious: Yes (Other)
  Sender: FDA-Public Use
  Company Number: None

PATIENT
  Sex: Male
  Weight: 75.749 kg

DRUGS (1)
  1. BENZONATATE [Suspect]
     Indication: BRONCHITIS
     Dosage: 200MG
     Route: 048
     Dates: start: 20110826, end: 20110828

REACTIONS (3)
  - PRODUCT SUBSTITUTION ISSUE [None]
  - CONFUSIONAL STATE [None]
  - HALLUCINATION [None]
